FAERS Safety Report 18565863 (Version 4)
Quarter: 2022Q1

REPORT INFORMATION
  Report Type: Spontaneous
  Country: US (occurrence: US)
  Receive Date: 20201201
  Receipt Date: 20220211
  Transmission Date: 20220423
  Serious: Yes (Hospitalization, Disabling)
  Sender: FDA-Public Use
  Company Number: US-AMERICAN REGENT INC-2020002534

PATIENT
  Age: 32 Year
  Sex: Male
  Weight: 73.016 kg

DRUGS (10)
  1. INJECTAFER [Suspect]
     Active Substance: FERRIC CARBOXYMALTOSE
     Indication: Iron deficiency anaemia
     Dosage: 750 MILLIGRAM IN SODIUM CHLORIDE 0.9% 250 ML IVPB ONCE
     Route: 042
     Dates: start: 20181130, end: 20181130
  2. INJECTAFER [Suspect]
     Active Substance: FERRIC CARBOXYMALTOSE
     Dosage: 750 MILLIGRAM IN SODIUM CHLORIDE 0.9% 250 ML IVPB ONCE
     Route: 042
     Dates: start: 20181205, end: 20181205
  3. INJECTAFER [Suspect]
     Active Substance: FERRIC CARBOXYMALTOSE
     Dosage: UNK UNK, SINGLE
     Dates: start: 20190111, end: 20190111
  4. INJECTAFER [Suspect]
     Active Substance: FERRIC CARBOXYMALTOSE
     Dosage: 750 MILLIGRAM IN SODIUM CHLORIDE 0.9% 250 ML IVPB ONCE
     Route: 042
     Dates: start: 20190118, end: 20190118
  5. LEUCOVORIN CALCIUM [Concomitant]
     Active Substance: LEUCOVORIN CALCIUM
     Indication: Chemotherapy
     Dosage: UNK X 6 CYCLES
     Route: 042
     Dates: start: 20190118, end: 20190429
  6. LEUCOVORIN CALCIUM [Concomitant]
     Active Substance: LEUCOVORIN CALCIUM
     Indication: Colon cancer
  7. 5-FLUOROURACIL                     /00098801/ [Concomitant]
     Indication: Chemotherapy
     Dosage: UNK X 6 CYCLES
     Route: 042
     Dates: start: 20190118, end: 20190429
  8. 5-FLUOROURACIL                     /00098801/ [Concomitant]
     Indication: Colon cancer
  9. OXALIPLATIN [Concomitant]
     Active Substance: OXALIPLATIN
     Indication: Chemotherapy
     Dosage: UNK X 6 CYCLES
     Route: 042
     Dates: start: 20190118, end: 20190429
  10. OXALIPLATIN [Concomitant]
     Active Substance: OXALIPLATIN
     Indication: Colon cancer

REACTIONS (19)
  - Pain [Not Recovered/Not Resolved]
  - Pain in extremity [Not Recovered/Not Resolved]
  - Muscle atrophy [Not Recovered/Not Resolved]
  - Musculoskeletal stiffness [Not Recovered/Not Resolved]
  - Muscle tightness [Not Recovered/Not Resolved]
  - Balance disorder [Not Recovered/Not Resolved]
  - Hypoaesthesia [Not Recovered/Not Resolved]
  - Asthenia [Not Recovered/Not Resolved]
  - Bradycardia [Recovered/Resolved]
  - Hypophosphataemia [Recovered/Resolved]
  - Headache [Not Recovered/Not Resolved]
  - Dyspnoea [Not Recovered/Not Resolved]
  - Arthralgia [Not Recovered/Not Resolved]
  - Dizziness [Not Recovered/Not Resolved]
  - Anhedonia [Not Recovered/Not Resolved]
  - Emotional distress [Not Recovered/Not Resolved]
  - Anxiety [Not Recovered/Not Resolved]
  - Product quality issue [Unknown]
  - Inappropriate schedule of product administration [Recovered/Resolved]

NARRATIVE: CASE EVENT DATE: 20181130
